FAERS Safety Report 5192985-3 (Version None)
Quarter: 2006Q4

REPORT INFORMATION
  Report Type: 
  Country: None (occurrence: None)
  Receive Date: 20061228
  Receipt Date: 20060403
  Transmission Date: 20070319
  Serious: No
  Sender: FDA-Public Use
  Company Number: US-GLAXOSMITHKLINE-A0600088A

PATIENT
  Sex: Female

DRUGS (4)
  1. FLONASE [Suspect]
     Route: 045
     Dates: start: 20010401
  2. ACCUPRIL [Concomitant]
  3. UNKNOWN MEDICATION [Concomitant]
  4. CELEBREX [Concomitant]

REACTIONS (1)
  - NASAL DISCOMFORT [None]
